FAERS Safety Report 4790808-5 (Version None)
Quarter: 2005Q3

REPORT INFORMATION
  Report Type: 
  Country: None (occurrence: None)
  Receive Date: 20050914
  Receipt Date: 20041011
  Transmission Date: 20060218
  Serious: Yes (Death)
  Sender: FDA-Public Use
  Company Number: 062-20785-04100426

PATIENT
  Age: 60 Year
  Sex: Male

DRUGS (7)
  1. THALIDOMIDE - PHARMION  (THALIDOMIDE) (50 MILLIGRAM, CAPSULES) [Suspect]
     Indication: MYELODYSPLASTIC SYNDROME
     Dosage: 400 MG, DAILY, ORAL
     Route: 048
     Dates: start: 20040127, end: 20041009
  2. OMEPRAZOLE [Concomitant]
  3. HYOSCINE HBR HYT [Concomitant]
  4. SPIRONOLACTONE [Concomitant]
  5. METOPROLOL TARTRATE [Concomitant]
  6. NEUPOGEN [Concomitant]
  7. ERYPO (EPOETIN ALFA) [Concomitant]

REACTIONS (2)
  - DEATH [None]
  - DISEASE PROGRESSION [None]
